FAERS Safety Report 11533022 (Version 1)
Quarter: 2015Q3

REPORT INFORMATION
  Report Type: Spontaneous
  Country: US (occurrence: US)
  Receive Date: 20150921
  Receipt Date: 20150921
  Transmission Date: 20151125
  Serious: No
  Sender: FDA-Public Use
  Company Number: GXBR2015US001845

PATIENT
  Sex: Male

DRUGS (4)
  1. CICLOPIROX. [Suspect]
     Active Substance: CICLOPIROX
     Indication: SKIN DISORDER
     Dosage: 1 %, BIW
     Route: 061
  2. CICLOPIROX. [Suspect]
     Active Substance: CICLOPIROX
     Indication: INFLAMMATION
  3. CICLOPIROX. [Suspect]
     Active Substance: CICLOPIROX
     Indication: FUNGAL INFECTION
     Dosage: 1 %, QD FOR A WEEK
     Route: 061
     Dates: start: 20150708
  4. GRISEOFULVIN. [Concomitant]
     Active Substance: GRISEOFULVIN
     Indication: FUNGAL INFECTION
     Dosage: UNK DF, UNK
     Route: 048
     Dates: start: 20150720

REACTIONS (1)
  - Alopecia [Not Recovered/Not Resolved]
